FAERS Safety Report 8586045-9 (Version None)
Quarter: 2012Q3

REPORT INFORMATION
  Report Type: 
  Country: None (occurrence: None)
  Receive Date: 20120810
  Receipt Date: 20120803
  Transmission Date: 20120928
  Serious: Yes (Other)
  Sender: FDA-Public Use
  Company Number: US-PFIZER INC-2012053931

PATIENT
  Age: 57 Year

DRUGS (40)
  1. DETROL LA [Suspect]
     Indication: BLADDER DISORDER
     Dosage: 4 MG, 1X/DAY (1 CAPSULE PER DAY)
  2. ZOLEDRONIC ACID [Concomitant]
     Indication: OSTEOPOROSIS
     Dosage: IV, 1X, ANNUALLY
  3. HYDROCODONE BITARTRATE + ACETAMINOPHEN [Concomitant]
     Indication: PAIN
     Dosage: 7.5/500, 6-8X DAY, AS NEEDED
  4. PROAIR HFA [Concomitant]
     Indication: CHRONIC OBSTRUCTIVE PULMONARY DISEASE
     Dosage: UNK
  5. VITAMIN D [Concomitant]
     Indication: OSTEOPOROSIS
     Dosage: 1000 MG, 1X/DAY (1X, PM)
  6. DOVONEX [Concomitant]
     Indication: PSORIASIS
     Dosage: MON TO FRI, AM + PM
  7. DIPHENOXYLATE HCL AND ATROPINE SULFATE [Concomitant]
     Indication: DIARRHOEA
     Dosage: UNK, AS NEEDED
  8. TESSALON [Suspect]
     Dosage: 200 MG, 4X/DAY (1 PILL 4X DAY)
  9. XANAX [Concomitant]
     Indication: ANXIETY
     Dosage: 1 MG, 3X/DAY (AM + PM)
  10. CITRACAL [Concomitant]
     Indication: OSTEOPOROSIS
     Dosage: 400 MG, 2X/DAY (2X, AM)
  11. SALONPAS /JPN/ [Concomitant]
     Dosage: 3-4 TIMES DAILY AS NEEDED
  12. ALLEGRA [Concomitant]
     Indication: HYPERSENSITIVITY
     Dosage: 80 MG, 1X/DAY (1X, AM)
  13. EFFEXOR [Concomitant]
     Indication: ANXIETY
     Dosage: 37.5 MG, 1X/DAY (1X, PM)
  14. EFFEXOR [Concomitant]
     Indication: DEPRESSION
  15. FLEXERIL [Concomitant]
     Indication: MUSCLE SPASMS
     Dosage: 10 MG, (UP TO 3X) AS NEEDED
  16. BENZONATATE [Concomitant]
     Indication: COUGH
     Dosage: 200 MG, (2X-4X, AM + PM)
  17. METOPROLOL [Concomitant]
     Indication: MYOCARDIAL INFARCTION
     Dosage: 25 MG, 2X/DAY (2X, AM + PM)
  18. LIDODERM [Concomitant]
     Indication: PAIN
     Dosage: 5% PATCH, AS NEEDED
  19. TRIAMCINOLONE [Concomitant]
     Indication: PSORIASIS
     Dosage: DAILY, 2X, AM + PM
  20. ADVAIR DISKUS 100/50 [Concomitant]
     Indication: CHRONIC OBSTRUCTIVE PULMONARY DISEASE
     Dosage: 250/50MCG, 2X, AM + PM
  21. NITROSTAT [Concomitant]
     Indication: CHEST PAIN
     Dosage: 0.4 MG, AS NEEDED
  22. ASPIRIN [Concomitant]
     Indication: MYOCARDIAL INFARCTION
     Dosage: 81 MG, 1X/DAY (AM)
  23. ATIVAN [Concomitant]
     Indication: ANXIETY
     Dosage: 1 MG, 2X/DAY (2X, AM + PM)
  24. ATIVAN [Concomitant]
     Indication: DEPRESSION
  25. CHLORZOXAZONE [Concomitant]
     Indication: MUSCLE SPASMS
     Dosage: 500 MG, 2X/DAY,  PM
  26. SENNA [Concomitant]
     Indication: ABDOMINAL DISCOMFORT
     Dosage: 8.6MG/50MG, 2 TABLETS, PM
  27. BUTALBITAL AND CAFFEINE AND PARACETAMOL [Concomitant]
     Indication: HEADACHE
     Dosage: 325 MG, AS NEEDED
  28. ZOLPIDEM TARTRATE [Concomitant]
     Indication: INSOMNIA
     Dosage: 10 MG, AS NEEDED
  29. SIMVASTATIN [Concomitant]
     Indication: BLOOD CHOLESTEROL
     Dosage: 40 MG, 1X/DAY (1X, PM)
  30. TIZANIDINE HYDROCHLORIDE [Concomitant]
     Indication: MUSCLE TIGHTNESS
     Dosage: 4 MG, 2X/DAY (2X, TIME: AM + PM)
  31. ZOLOFT [Suspect]
     Indication: DEPRESSION
     Dosage: 50 MG, 1X/DAY (1X, PM)
  32. PLAVIX [Concomitant]
     Indication: MYOCARDIAL INFARCTION
     Dosage: 75 MG, (1X, AM + PM)
  33. DETROL LA [Suspect]
     Dosage: 4 MG, 1X/DAY (1X, PM)
  34. ZOLOFT [Suspect]
     Indication: ANXIETY
     Dosage: 50 MG, 1X/DAY (1 TABLET IN EVENING)
  35. XANAX [Concomitant]
     Indication: DEPRESSION
  36. OXYCODONE HYDROCHLORIDE [Concomitant]
     Indication: PAIN
     Dosage: 5 MG, (6-8X DAY) AS NEEDED
  37. PROCHLORPERAZINE [Concomitant]
     Indication: ABDOMINAL DISCOMFORT
     Dosage: 10 MG, (1X-4X) AS NEEDED
  38. ALLEGRA [Concomitant]
     Indication: CHRONIC OBSTRUCTIVE PULMONARY DISEASE
  39. FOLIC ACID [Concomitant]
     Indication: MYOCARDIAL INFARCTION
     Dosage: 800 MG, 1X/DAY (1X, AM)
  40. ASCORBIC ACID [Concomitant]
     Indication: PROPHYLAXIS
     Dosage: 1000 MG, DAILY, PM

REACTIONS (2)
  - RHEUMATOID ARTHRITIS [None]
  - ECZEMA [None]
